FAERS Safety Report 19727726 (Version 3)
Quarter: 2021Q3

REPORT INFORMATION
  Report Type: Other
  Country: US (occurrence: US)
  Receive Date: 20210820
  Receipt Date: 20210914
  Transmission Date: 20211014
  Serious: Yes (Other)
  Sender: FDA-Public Use
  Company Number: US-ROCHE-2893605

PATIENT
  Sex: Female

DRUGS (13)
  1. DULOXETINE. [Concomitant]
     Active Substance: DULOXETINE
  2. ESTRADIOL. [Concomitant]
     Active Substance: ESTRADIOL
  3. GABAPENTIN. [Concomitant]
     Active Substance: GABAPENTIN
  4. NOVOLOG [Concomitant]
     Active Substance: INSULIN ASPART
  5. ROPINIROLE. [Concomitant]
     Active Substance: ROPINIROLE
  6. ATORVASTATIN [Concomitant]
     Active Substance: ATORVASTATIN
  7. PREDNISONE. [Concomitant]
     Active Substance: PREDNISONE
  8. ACTEMRA [Suspect]
     Active Substance: TOCILIZUMAB
  9. ACTEMRA [Suspect]
     Active Substance: TOCILIZUMAB
     Indication: POLYMYALGIA RHEUMATICA
  10. OMEPRAZOLE. [Concomitant]
     Active Substance: OMEPRAZOLE
  11. ACTEMRA [Suspect]
     Active Substance: TOCILIZUMAB
     Indication: GIANT CELL ARTERITIS
     Route: 058
  12. ACTEMRA [Suspect]
     Active Substance: TOCILIZUMAB
  13. ALENDRONATE [Concomitant]
     Active Substance: ALENDRONATE SODIUM

REACTIONS (4)
  - Memory impairment [Unknown]
  - Cataract [Unknown]
  - Headache [Unknown]
  - Visual impairment [Unknown]
